FAERS Safety Report 21074307 (Version 1)
Quarter: 2022Q3

REPORT INFORMATION
  Report Type: Spontaneous
  Country: FR (occurrence: FR)
  Receive Date: 20220713
  Receipt Date: 20220713
  Transmission Date: 20221027
  Serious: Yes (Hospitalization, Other)
  Sender: FDA-Public Use
  Company Number: FR-AFSSAPS-AVPA20220367

PATIENT
  Age: 22 Year
  Sex: Male

DRUGS (8)
  1. TRAMADOL [Suspect]
     Active Substance: TRAMADOL
     Indication: Product used for unknown indication
     Dosage: UNK, (2-3 TRAMADOL STRIPS PER WEEK WITH ONE STRIP EACH TIME)
     Route: 048
  2. CANNABIS SATIVA SUBSP. INDICA TOP [Suspect]
     Active Substance: CANNABIS SATIVA SUBSP. INDICA TOP
     Indication: Product used for unknown indication
     Dosage: UNK, (7/8 JOINTS/DAY IN THE MORNING (PEAK CONSUMPTION AT 20 JOINTS/DAY))
  3. COCAINE [Suspect]
     Active Substance: COCAINE
     Indication: Product used for unknown indication
     Dosage: 1 GRAM
     Route: 045
  4. CODEINE\HERBALS [Suspect]
     Active Substance: CODEINE\HERBALS
     Indication: Product used for unknown indication
     Dosage: UNK
     Route: 065
  5. RIVOTRIL [Suspect]
     Active Substance: CLONAZEPAM
     Indication: Product used for unknown indication
     Dosage: UNK, (USES RIVOTRIL WHEN HE FINDS IT FOR COCAINE DESCENT)
     Route: 065
  6. SKENAN [Suspect]
     Active Substance: MORPHINE SULFATE
     Indication: Product used for unknown indication
     Dosage: UNK
     Route: 065
  7. SUBUTEX [Suspect]
     Active Substance: BUPRENORPHINE HYDROCHLORIDE
     Indication: Product used for unknown indication
     Dosage: UNK, (MISUSE OF SUBUTEX WHILE SMOKING OR WHISTLING)
     Route: 045
  8. XANAX [Suspect]
     Active Substance: ALPRAZOLAM
     Indication: Product used for unknown indication
     Dosage: UNK, (1 PADS 2 TO 3 TIMES A WEEK)
     Route: 048

REACTIONS (3)
  - Drug dependence [Recovering/Resolving]
  - Sinusitis [Not Recovered/Not Resolved]
  - Intentional product misuse [Recovering/Resolving]
